FAERS Safety Report 19482204 (Version 2)
Quarter: 2021Q4

REPORT INFORMATION
  Report Type: Spontaneous
  Country: JP (occurrence: JP)
  Receive Date: 20210701
  Receipt Date: 20211122
  Transmission Date: 20220304
  Serious: Yes (Hospitalization)
  Sender: FDA-Public Use
  Company Number: JP-ABBVIE-21K-087-3971863-00

PATIENT
  Age: 61 Year
  Sex: Female

DRUGS (2)
  1. RINVOQ [Suspect]
     Active Substance: UPADACITINIB
     Indication: Rheumatoid arthritis
     Route: 048
     Dates: start: 20210604
  2. PREDNISOLONE [Concomitant]
     Active Substance: PREDNISOLONE
     Indication: Product used for unknown indication

REACTIONS (2)
  - Femur fracture [Unknown]
  - Post procedural swelling [Unknown]

NARRATIVE: CASE EVENT DATE: 20210101
